FAERS Safety Report 5772000-0 (Version None)
Quarter: 2008Q2

REPORT INFORMATION
  Report Type: 
  Country: None (occurrence: None)
  Receive Date: 20080612
  Receipt Date: 20080612
  Transmission Date: 20081010
  Serious: Yes (Death)
  Sender: FDA-Public Use
  Company Number: None

PATIENT
  Age: 77 Year
  Sex: Female
  Weight: 70.3075 kg

DRUGS (3)
  1. DIGOXIN [Suspect]
     Indication: ARRHYTHMIA
     Dosage: 1 TABLET DAIILY PO
     Route: 048
     Dates: start: 20060829, end: 20070629
  2. DIGOXIN [Suspect]
  3. DIGOXIN [Suspect]
     Indication: ARRHYTHMIA
     Dosage: 1 TABLET DAILY PO
     Route: 048
     Dates: start: 20070623, end: 20070829

REACTIONS (1)
  - OVERDOSE [None]
